FAERS Safety Report 8473498 (Version 2)
Quarter: 2013Q2

REPORT INFORMATION
  Report Type: Spontaneous
  Country: US (occurrence: US)
  Receive Date: 20120323
  Receipt Date: 20130417
  Transmission Date: 20140414
  Serious: Yes (Life-Threatening, Hospitalization)
  Sender: FDA-Public Use
  Company Number: US-BAYER-2012-027466

PATIENT
  Age: 26 Year
  Sex: Female
  Weight: 69.84 kg

DRUGS (13)
  1. YAZ [Suspect]
  2. YASMIN [Suspect]
  3. OCELLA [Suspect]
     Indication: CONTRACEPTION
  4. ORTHO TRI-CYCLEN [Concomitant]
  5. XANAX [Concomitant]
     Indication: ANXIETY DISORDER
     Dosage: UNK UNK, PRN
  6. TORADOL [Concomitant]
     Indication: PAIN
  7. DILAUDID [Concomitant]
     Indication: PAIN
  8. DARVOCET [Concomitant]
     Indication: PAIN
  9. ANTIBIOTICS [Concomitant]
     Indication: PROPHYLAXIS
  10. AUGMENTIN [Concomitant]
  11. AZITHROMYCIN [Concomitant]
  12. NORCO [Concomitant]
     Indication: PAIN
  13. OXYCONTIN [Concomitant]
     Indication: PAIN

REACTIONS (6)
  - Pulmonary embolism [None]
  - Injury [None]
  - Pain [None]
  - General physical health deterioration [None]
  - Anxiety [None]
  - Anhedonia [None]
